FAERS Safety Report 8359846-X (Version None)
Quarter: 2012Q2

REPORT INFORMATION
  Report Type: 
  Country: None (occurrence: None)
  Receive Date: 20120515
  Receipt Date: 20120504
  Transmission Date: 20120825
  Serious: Yes (Other)
  Sender: FDA-Public Use
  Company Number: AU-JNJFOC-20120507637

PATIENT
  Sex: Female

DRUGS (1)
  1. INVEGA SUSTENNA [Suspect]
     Indication: PRODUCT USED FOR UNKNOWN INDICATION
     Route: 030

REACTIONS (5)
  - MALAISE [None]
  - APATHY [None]
  - DIABETES MELLITUS [None]
  - QUALITY OF LIFE DECREASED [None]
  - ASTHENIA [None]
